FAERS Safety Report 21440362 (Version 1)
Quarter: 2022Q4

REPORT INFORMATION
  Report Type: Spontaneous
  Country: US (occurrence: US)
  Receive Date: 20221011
  Receipt Date: 20221011
  Transmission Date: 20230113
  Serious: No
  Sender: FDA-Public Use
  Company Number: US-AMNEAL PHARMACEUTICALS-2021-AMRX-05240

PATIENT
  Sex: Female

DRUGS (5)
  1. LIORESAL [Suspect]
     Active Substance: BACLOFEN
     Indication: Muscle spasticity
     Dosage: 100 ?G, \DAY
     Route: 037
     Dates: start: 2011
  2. LIORESAL [Suspect]
     Active Substance: BACLOFEN
     Indication: Cerebral palsy
     Dosage: UNK; TRIED INCREASING DOSE
     Route: 037
  3. LIORESAL [Suspect]
     Active Substance: BACLOFEN
     Dosage: 100 ?G, \DAY; RECENTLY (RELATIVE TO 27-DEC-2021) CHANGED BACK TO THIS CONCENTRATION FROM  2000 ?G/ML
     Route: 037
     Dates: start: 2021
  4. LIORESAL [Suspect]
     Active Substance: BACLOFEN
     Indication: Muscle spasticity
     Dosage: 100 ?G, 1X/DAY; HAD BEEN ON 2000 ?G/ML CONCENTRATION ^MORE RECENTLY^ (RELATIVE TO 27-DEC-2021)
     Route: 037
     Dates: start: 2021
  5. LIORESAL [Suspect]
     Active Substance: BACLOFEN
     Indication: Cerebral palsy

REACTIONS (3)
  - Dizziness [Recovered/Resolved]
  - Gastrointestinal disorder [Recovering/Resolving]
  - Pain [Recovered/Resolved]
